FAERS Safety Report 10160069 (Version 2)
Quarter: 2015Q2

REPORT INFORMATION
  Report Type: Spontaneous
  Country: US (occurrence: US)
  Receive Date: 20140508
  Receipt Date: 20150427
  Transmission Date: 20150821
  Serious: No
  Sender: FDA-Public Use
  Company Number: US-GLAXOSMITHKLINE-A1061621A

PATIENT
  Sex: Female

DRUGS (4)
  1. TYKERB [Suspect]
     Active Substance: LAPATINIB DITOSYLATE
     Indication: BREAST CANCER
     Dosage: 250 MG TABLET AT UNKNOWN DOSING
     Route: 065
  2. TYKERB [Suspect]
     Active Substance: LAPATINIB DITOSYLATE
     Dosage: 1250 MG, QD
     Route: 048
     Dates: start: 201312
  3. ATIVAN [Concomitant]
     Active Substance: LORAZEPAM
  4. TURMERIC [Concomitant]
     Active Substance: TURMERIC

REACTIONS (10)
  - Menstrual disorder [Recovered/Resolved]
  - Herpes zoster [Unknown]
  - Menstruation irregular [Unknown]
  - Diarrhoea [Unknown]
  - Influenza like illness [Unknown]
  - Acne [Unknown]
  - Pain in extremity [Unknown]
  - Dry skin [Unknown]
  - Blister [Unknown]
  - Drug dose omission [Unknown]

NARRATIVE: CASE EVENT DATE: 2012
